FAERS Safety Report 7922936 (Version 2)
Quarter: 2014Q2

REPORT INFORMATION
  Report Type: Report from Study
  Country: US (occurrence: US)
  Receive Date: 20110429
  Receipt Date: 20140411
  Transmission Date: 20141212
  Serious: No
  Sender: FDA-Public Use
  Company Number: US-ASTRAZENECA-2010SE17521

PATIENT
  Age: 86 Year
  Sex: Female

DRUGS (2)
  1. NEXIUM [Suspect]
     Route: 048
     Dates: start: 201403
  2. PLAVIX [Interacting]
     Route: 065

REACTIONS (2)
  - Drug interaction [Unknown]
  - Drug dose omission [Not Recovered/Not Resolved]
